FAERS Safety Report 19010178 (Version 8)
Quarter: 2023Q2

REPORT INFORMATION
  Report Type: Report from Study
  Country: US (occurrence: US)
  Receive Date: 20210315
  Receipt Date: 20230609
  Transmission Date: 20230721
  Serious: Yes (Hospitalization, Other)
  Sender: FDA-Public Use
  Company Number: US-TAKEDA-US201907665

PATIENT
  Age: 52 Year
  Sex: Female

DRUGS (2)
  1. HUMAN IMMUNOGLOBULIN G [Suspect]
     Active Substance: HUMAN IMMUNOGLOBULIN G
     Indication: Primary immunodeficiency syndrome
     Dosage: UNK, Q3WEEKS
     Route: 042
  2. HUMAN IMMUNOGLOBULIN G [Suspect]
     Active Substance: HUMAN IMMUNOGLOBULIN G
     Dosage: UNK, Q2WEEKS
     Route: 042

REACTIONS (12)
  - Pneumonia bacterial [Unknown]
  - Viral upper respiratory tract infection [Unknown]
  - COVID-19 [Unknown]
  - Cataract [Unknown]
  - Spinal cord infection [Unknown]
  - Pneumonia [Unknown]
  - Injury [Unknown]
  - Viral infection [Recovered/Resolved]
  - Illness [Unknown]
  - Malaise [Unknown]
  - Migraine [Unknown]
  - Myalgia [Unknown]

NARRATIVE: CASE EVENT DATE: 20191201
